FAERS Safety Report 18392951 (Version 1)
Quarter: 2020Q4

REPORT INFORMATION
  Report Type: Spontaneous
  Country: US (occurrence: US)
  Receive Date: 20201016
  Receipt Date: 20201016
  Transmission Date: 20210114
  Serious: No
  Sender: FDA-Public Use
  Company Number: US-BIOGEN-2020BI00935346

PATIENT
  Sex: Female

DRUGS (2)
  1. TECFIDERA [Suspect]
     Active Substance: DIMETHYL FUMARATE
     Indication: RELAPSING-REMITTING MULTIPLE SCLEROSIS
     Route: 065
     Dates: start: 20180509
  2. TYSABRI [Suspect]
     Active Substance: NATALIZUMAB
     Indication: MULTIPLE SCLEROSIS
     Route: 065

REACTIONS (9)
  - Confusional state [Unknown]
  - Mental impairment [Unknown]
  - Frustration tolerance decreased [Unknown]
  - Mental disorder [Unknown]
  - Stress [Unknown]
  - Pain [Unknown]
  - Feeling abnormal [Unknown]
  - Secondary progressive multiple sclerosis [Unknown]
  - Emotional disorder [Unknown]
